FAERS Safety Report 19725920 (Version 8)
Quarter: 2022Q1

REPORT INFORMATION
  Report Type: Report from Study
  Country: US (occurrence: US)
  Receive Date: 20210820
  Receipt Date: 20220324
  Transmission Date: 20220423
  Serious: Yes (Hospitalization, Disabling, Other)
  Sender: FDA-Public Use
  Company Number: US-SANOFI-00657164

PATIENT
  Age: 58 Year
  Sex: Female

DRUGS (5)
  1. TERIFLUNOMIDE [Suspect]
     Active Substance: TERIFLUNOMIDE
     Indication: Multiple sclerosis
     Dosage: 14 MG, QD
     Route: 048
     Dates: start: 20210708
  2. DALFAMPRIDINE [Concomitant]
     Active Substance: DALFAMPRIDINE
  3. GABAPENTIN [Concomitant]
     Active Substance: GABAPENTIN
  4. URISPAS [Concomitant]
     Active Substance: FLAVOXATE HYDROCHLORIDE
  5. OXYCONTIN [Concomitant]
     Active Substance: OXYCODONE HYDROCHLORIDE
     Dosage: FREQUENCY: 3 WEEKS

REACTIONS (24)
  - Walking aid user [Unknown]
  - Paralysis [Unknown]
  - Spinal operation [Not Recovered/Not Resolved]
  - Condition aggravated [Unknown]
  - Limb discomfort [Unknown]
  - Gait disturbance [Unknown]
  - Poor quality sleep [Unknown]
  - Fatigue [Unknown]
  - Asthenia [Unknown]
  - Memory impairment [Unknown]
  - Muscle spasms [Not Recovered/Not Resolved]
  - Arthropod bite [Unknown]
  - Feeling abnormal [Unknown]
  - Pain [Not Recovered/Not Resolved]
  - Skin discolouration [Not Recovered/Not Resolved]
  - Pollakiuria [Not Recovered/Not Resolved]
  - Malaise [Unknown]
  - Emotional distress [Unknown]
  - Peripheral swelling [Not Recovered/Not Resolved]
  - Sensory disturbance [Unknown]
  - Hypersensitivity [Not Recovered/Not Resolved]
  - Hyperaesthesia [Not Recovered/Not Resolved]
  - Nasopharyngitis [Unknown]
  - Product dose omission issue [Unknown]

NARRATIVE: CASE EVENT DATE: 20210101
